FAERS Safety Report 24664835 (Version 1)
Quarter: 2024Q4

REPORT INFORMATION
  Report Type: Other
  Country: JP (occurrence: JP)
  Receive Date: 20241126
  Receipt Date: 20241126
  Transmission Date: 20250115
  Serious: Yes (Other)
  Sender: VISTAPHARM
  Company Number: JP-Vista Pharmaceuticals Inc.-2165971

PATIENT
  Age: 70 Year
  Sex: Female

DRUGS (4)
  1. SULFAMETHOXAZOLE\TRIMETHOPRIM [Suspect]
     Active Substance: SULFAMETHOXAZOLE\TRIMETHOPRIM
     Indication: Pneumocystis jirovecii pneumonia
  2. AVACOPAN [Suspect]
     Active Substance: AVACOPAN
  3. RITUXIMAB [Concomitant]
     Active Substance: RITUXIMAB
  4. PREDNISOLONE [Concomitant]
     Active Substance: PREDNISOLONE

REACTIONS (2)
  - Drug-induced liver injury [Unknown]
  - Vanishing bile duct syndrome [Unknown]
